FAERS Safety Report 6600334-6 (Version None)
Quarter: 2010Q1

REPORT INFORMATION
  Report Type: 
  Country: None (occurrence: None)
  Receive Date: 20100224
  Receipt Date: 20100215
  Transmission Date: 20100710
  Serious: Yes (Death, Hospitalization)
  Sender: FDA-Public Use
  Company Number: US-BAXTER-2010BH001334

PATIENT
  Age: 44 Year
  Sex: Female

DRUGS (1)
  1. DIANEAL [Suspect]
     Indication: PERITONEAL DIALYSIS
     Route: 033

REACTIONS (9)
  - DECREASED APPETITE [None]
  - FATIGUE [None]
  - GUILLAIN-BARRE SYNDROME [None]
  - HYPOALBUMINAEMIA [None]
  - PERITONITIS [None]
  - RESPIRATORY FAILURE [None]
  - SEPSIS [None]
  - SHOCK [None]
  - SOMNOLENCE [None]
